FAERS Safety Report 16693260 (Version 1)
Quarter: 2019Q3

REPORT INFORMATION
  Report Type: Spontaneous
  Country: AU (occurrence: AU)
  Receive Date: 20190812
  Receipt Date: 20190812
  Transmission Date: 20191004
  Serious: Yes (Other)
  Sender: FDA-Public Use
  Company Number: AU-BRISTOL-MYERS SQUIBB COMPANY-BMS-2019-075781

PATIENT
  Age: 45 Year
  Sex: Female

DRUGS (1)
  1. DASATINIB. [Suspect]
     Active Substance: DASATINIB
     Indication: CHRONIC MYELOID LEUKAEMIA
     Dosage: 50 MILLIGRAM, DAILY
     Route: 065

REACTIONS (5)
  - Hemiparesis [Unknown]
  - Prescribed underdose [Unknown]
  - Demyelination [Unknown]
  - Hypoaesthesia [Unknown]
  - Central nervous system lesion [Unknown]
